APPROVED DRUG PRODUCT: ACEPHEN
Active Ingredient: ACETAMINOPHEN
Strength: 325MG
Dosage Form/Route: SUPPOSITORY;RECTAL
Application: N018060 | Product #003
Applicant: COSETTE PHARMACEUTICALS INC
Approved: Dec 18, 1986 | RLD: No | RS: No | Type: DISCN